FAERS Safety Report 11830376 (Version 4)
Quarter: 2016Q1

REPORT INFORMATION
  Report Type: Spontaneous
  Country: US (occurrence: US)
  Receive Date: 20151214
  Receipt Date: 20160301
  Transmission Date: 20160525
  Serious: Yes (Disabling, Other)
  Sender: FDA-Public Use
  Company Number: US-JNJFOC-20151108306

PATIENT
  Age: 72 Year
  Sex: Male
  Weight: 106.6 kg

DRUGS (1)
  1. LEVAQUIN [Suspect]
     Active Substance: LEVOFLOXACIN
     Indication: SINUSITIS
     Route: 048
     Dates: start: 20101119, end: 20101201

REACTIONS (5)
  - Tendon pain [Unknown]
  - Paraesthesia [Unknown]
  - Hypoaesthesia [Unknown]
  - Tendonitis [Unknown]
  - Insomnia [Unknown]

NARRATIVE: CASE EVENT DATE: 2010
